FAERS Safety Report 9252342 (Version 1)
Quarter: 2013Q1

REPORT INFORMATION
  Report Type: Spontaneous
  Country: US (occurrence: None)
  Receive Date: 20130305
  Receipt Date: 20130305
  Transmission Date: 20140127
  Serious: Yes (Other)
  Sender: FDA-Public Use
  Company Number: 163-21880-12082651

PATIENT
  Age: 67 Year
  Sex: Female
  Weight: 88.45 kg

DRUGS (12)
  1. REVLIMID [Suspect]
     Indication: PLASMA CELL MYELOMA
     Dosage: 25 MG, 21 IN 21 D, PO
     Dates: start: 20120614, end: 201209
  2. DIOVAN HCT (CO-DIOVAN) [Concomitant]
  3. DILTIAZEM HCL (DILTIAZEM HYDROCHLORIDE) [Concomitant]
  4. HYDROCODONE-ACETAMINOPHEN (REMEDEINE) [Concomitant]
  5. LUMIGAN (BIMATOPROST) [Concomitant]
  6. IBUPROPEN (IBUPROFEN) [Concomitant]
  7. TYLENOL PM EXTRA STRENGTH (DOZOL) [Concomitant]
  8. DEXAMETHASONE (DEXAMETHASONE) [Concomitant]
  9. METAMUCIL (METAMUCIL ^PROCTER + GAMBLE^) [Concomitant]
  10. METFORMIN (METFORMIN) [Concomitant]
  11. BIMATOPROST (BIMATOPROST) [Concomitant]
  12. ALENDRONATE SODIUM (ALENDRONATE SODIUM) [Concomitant]

REACTIONS (2)
  - Infection [None]
  - Fatigue [None]
